FAERS Safety Report 10570354 (Version 3)
Quarter: 2014Q4

REPORT INFORMATION
  Report Type: Spontaneous
  Country: JP (occurrence: JP)
  Receive Date: 20141107
  Receipt Date: 20141127
  Transmission Date: 20150529
  Serious: Yes (Death, Other)
  Sender: FDA-Public Use
  Company Number: PHHY2011JP28737

PATIENT
  Age: 47 Year
  Sex: Male
  Weight: 65 kg

DRUGS (9)
  1. HYDREA [Concomitant]
     Active Substance: HYDROXYUREA
     Dosage: 500 MG, QD
     Route: 048
  2. TASIGNA [Suspect]
     Active Substance: NILOTINIB
     Dosage: 600 MG, QD
     Route: 048
     Dates: start: 20110308
  3. HYDREA [Concomitant]
     Active Substance: HYDROXYUREA
     Dosage: 2000 MG, QD
     Route: 065
     Dates: start: 20110129
  4. TASIGNA [Suspect]
     Active Substance: NILOTINIB
     Dosage: 400 MG, QD
     Route: 048
     Dates: start: 20110221, end: 20110307
  5. HYDREA [Concomitant]
     Active Substance: HYDROXYUREA
     Indication: CHRONIC MYELOID LEUKAEMIA
     Dosage: 1000 MG, QD
     Route: 048
     Dates: start: 20110126
  6. TASIGNA [Suspect]
     Active Substance: NILOTINIB
     Dosage: 200 MG, QD
     Route: 048
     Dates: start: 20110217, end: 20110220
  7. TASIGNA [Suspect]
     Active Substance: NILOTINIB
     Route: 065
     Dates: start: 20110501
  8. TASIGNA [Suspect]
     Active Substance: NILOTINIB
     Indication: CHRONIC MYELOID LEUKAEMIA
     Dosage: 600 MG, QD
     Route: 048
     Dates: start: 20110201, end: 20110204
  9. HYDREA [Concomitant]
     Active Substance: HYDROXYUREA
     Dosage: 1000 MG, QD
     Route: 065

REACTIONS (9)
  - Death [Fatal]
  - Back pain [Recovering/Resolving]
  - White blood cell count decreased [Unknown]
  - Blood urea increased [Unknown]
  - Tumour lysis syndrome [Recovered/Resolved]
  - Haematuria [Recovered/Resolved]
  - Acute kidney injury [Recovering/Resolving]
  - Blood creatinine increased [Unknown]
  - Pyrexia [Unknown]

NARRATIVE: CASE EVENT DATE: 2011
